FAERS Safety Report 13401254 (Version 1)
Quarter: 2017Q2

REPORT INFORMATION
  Report Type: Spontaneous
  Country: FR (occurrence: FR)
  Receive Date: 20170404
  Receipt Date: 20170404
  Transmission Date: 20170830
  Serious: Yes (Hospitalization)
  Sender: FDA-Public Use
  Company Number: FR-TEVA-756537ROM

PATIENT
  Age: 61 Year
  Sex: Male

DRUGS (4)
  1. DOCETAXEL ACCORD [Suspect]
     Active Substance: DOCETAXEL
     Indication: SQUAMOUS CELL CARCINOMA
     Dosage: 107 MILLIGRAM DAILY;
     Route: 042
     Dates: start: 20161212, end: 20161212
  2. INEXIUM [Concomitant]
     Active Substance: ESOMEPRAZOLE
  3. CISPLATINE MYLAN [Suspect]
     Active Substance: CISPLATIN
     Indication: SQUAMOUS CELL CARCINOMA
     Dosage: 36 MILLIGRAM DAILY;
     Route: 042
     Dates: start: 20161212, end: 20161216
  4. FLUOROURACILE TEVA [Suspect]
     Active Substance: FLUOROURACIL
     Indication: SQUAMOUS CELL CARCINOMA
     Dosage: 935 MILLIGRAM DAILY;
     Route: 042
     Dates: start: 20161212, end: 20161216

REACTIONS (5)
  - Bone marrow failure [Recovering/Resolving]
  - Acute kidney injury [Recovered/Resolved]
  - Diarrhoea [Recovered/Resolved]
  - Interstitial lung disease [Recovering/Resolving]
  - Septic shock [Recovered/Resolved]

NARRATIVE: CASE EVENT DATE: 201612
